FAERS Safety Report 7628975-8 (Version None)
Quarter: 2011Q3

REPORT INFORMATION
  Report Type: 
  Country: None (occurrence: None)
  Receive Date: 20110722
  Receipt Date: 20100614
  Transmission Date: 20111222
  Serious: No
  Sender: FDA-Public Use
  Company Number: US-MYLANLABS-2010S1010766

PATIENT
  Sex: Female

DRUGS (4)
  1. METOPROLOL SUCCINATE [Suspect]
  2. LIPITOR [Suspect]
  3. CLONIDINE HYDROCHLORIDE [Suspect]
  4. CLONIDINE [Suspect]

REACTIONS (1)
  - ALOPECIA [None]
